FAERS Safety Report 4965757-X (Version None)
Quarter: 2006Q2

REPORT INFORMATION
  Report Type: 
  Country: None (occurrence: None)
  Receive Date: 20060407
  Receipt Date: 20060329
  Transmission Date: 20061013
  Serious: Yes (Hospitalization, Other)
  Sender: FDA-Public Use
  Company Number: GB-JNJFOC-20060307263

PATIENT
  Sex: Female
  Weight: 54 kg

DRUGS (14)
  1. REMICADE [Suspect]
     Indication: RHEUMATOID ARTHRITIS
     Route: 042
  2. SULFASALAZINE [Concomitant]
     Route: 065
  3. METHOTREXATE [Concomitant]
     Route: 065
  4. PREDNISOLONE [Concomitant]
     Route: 065
  5. BURINEX [Concomitant]
     Route: 065
  6. CITALOPRAM [Concomitant]
     Route: 065
  7. FERROUS SULFATE TAB [Concomitant]
     Route: 065
  8. FOLIC ACID [Concomitant]
     Route: 065
  9. FOSAMAX [Concomitant]
     Route: 065
  10. METOCLOPRAMIDE [Concomitant]
     Route: 065
  11. OMEPRAZOLE [Concomitant]
     Route: 065
  12. SOLPADOL [Concomitant]
     Route: 065
  13. SOLPADOL [Concomitant]
     Route: 065
  14. ZOPICLONE [Concomitant]
     Route: 065

REACTIONS (2)
  - DIVERTICULUM [None]
  - URINARY TRACT INFECTION [None]
